FAERS Safety Report 4378164-8 (Version None)
Quarter: 2004Q2

REPORT INFORMATION
  Report Type: 
  Country: None (occurrence: None)
  Receive Date: 20040615
  Receipt Date: 20040615
  Transmission Date: 20050107
  Serious: Yes (Life-Threatening)
  Sender: FDA-Public Use
  Company Number: None

PATIENT
  Sex: Male
  Weight: 46.5 kg

DRUGS (6)
  1. VORICONAZOLE [Suspect]
     Indication: CANDIDA SEPSIS
     Dosage: 300 MG Q 12 H IV
     Route: 042
     Dates: start: 20040613, end: 20040614
  2. CEFEPIME [Concomitant]
  3. CIPROFLOXACIN [Concomitant]
  4. DIGOXIN [Concomitant]
  5. FAMOTIDINE [Concomitant]
  6. FUROSEMIDE [Concomitant]

REACTIONS (3)
  - TORSADE DE POINTES [None]
  - VENTRICULAR FIBRILLATION [None]
  - VENTRICULAR TACHYCARDIA [None]
